FAERS Safety Report 9796877 (Version 1)
Quarter: 2014Q1

REPORT INFORMATION
  Report Type: Spontaneous
  Country: US (occurrence: None)
  Receive Date: 20140102
  Receipt Date: 20140102
  Transmission Date: 20141002
  Serious: Yes (Other)
  Sender: FDA-Public Use
  Company Number: None

PATIENT
  Age: 62 Year
  Sex: Female
  Weight: 64.86 kg

DRUGS (1)
  1. AVODART [Suspect]
     Indication: ALOPECIA
     Dosage: 1 PILL
     Route: 048
     Dates: start: 20130806, end: 20130812

REACTIONS (6)
  - Weight increased [None]
  - Frustration [None]
  - Rash [None]
  - Rash [None]
  - Rash [None]
  - Rash [None]
